FAERS Safety Report 7577796 (Version 4)
Quarter: 2013Q3

REPORT INFORMATION
  Report Type: Spontaneous
  Country: US (occurrence: US)
  Receive Date: 20100909
  Receipt Date: 20130926
  Transmission Date: 20140515
  Serious: Yes (Hospitalization, Other)
  Sender: FDA-Public Use
  Company Number: US-JNJFOC-20100901277

PATIENT
  Sex: Male

DRUGS (3)
  1. LEVAQUIN [Suspect]
     Indication: URINARY TRACT INFECTION
     Route: 048
  2. LEVAQUIN [Suspect]
     Indication: PNEUMONIA
     Route: 048
  3. CEFAZOLIN [Suspect]
     Indication: PROPHYLAXIS

REACTIONS (11)
  - Toxic epidermal necrolysis [Recovering/Resolving]
  - Stevens-Johnson syndrome [Recovering/Resolving]
  - Pneumonia [Unknown]
  - Pneumothorax [Unknown]
  - Convulsion [Unknown]
  - Respiratory failure [Unknown]
  - Renal disorder [Unknown]
  - Cystitis noninfective [Unknown]
  - Hepatitis [Unknown]
  - Depression [Unknown]
  - Anxiety [Unknown]
